FAERS Safety Report 12569263 (Version 2)
Quarter: 2016Q3

REPORT INFORMATION
  Report Type: Report from Study
  Country: KR (occurrence: KR)
  Receive Date: 20160719
  Receipt Date: 20160721
  Transmission Date: 20161109
  Serious: Yes (Other)
  Sender: FDA-Public Use
  Company Number: PHHY2016KR063371

PATIENT
  Age: 63 Year
  Sex: Male

DRUGS (74)
  1. ROCEPHIN [Concomitant]
     Active Substance: CEFTRIAXONE SODIUM
     Indication: PROPHYLAXIS
     Dosage: 2 G, UNK
     Route: 065
     Dates: start: 20151110, end: 20151110
  2. URANTAC [Concomitant]
     Indication: GASTROOESOPHAGEAL REFLUX DISEASE
     Dosage: 50 MG, UNK
     Route: 065
     Dates: start: 20151028, end: 20151028
  3. ALIMTA [Concomitant]
     Active Substance: PEMETREXED DISODIUM
     Dosage: 825 MG, UNK
     Route: 065
     Dates: start: 20151229, end: 20151229
  4. DENOGAN [Concomitant]
     Active Substance: PROPACETAMOL HYDROCHLORIDE
     Indication: CHOLELITHIASIS
     Dosage: 1 G, UNK
     Route: 065
     Dates: start: 20151110, end: 20151110
  5. FOY [Concomitant]
     Active Substance: GABEXATE MESYLATE
     Dosage: 300 MG, UNK
     Route: 065
     Dates: start: 20151117, end: 20151117
  6. FUTHAN [Concomitant]
     Active Substance: NAFAMOSTAT MESYLATE
     Indication: CHOLELITHIASIS
     Dosage: 150 MG, UNK
     Route: 065
     Dates: start: 20151110, end: 20151110
  7. LEGALON [Concomitant]
     Active Substance: MILK THISTLE
     Indication: CHOLELITHIASIS
     Dosage: 280 MG, UNK
     Route: 065
     Dates: start: 20151126, end: 20151209
  8. MACPERAN [Concomitant]
     Active Substance: METOCLOPRAMIDE HYDROCHLORIDE
     Dosage: 15 MG, UNK
     Route: 065
     Dates: start: 20151015, end: 20151019
  9. UCERAX [Concomitant]
     Indication: PRURITUS
     Dosage: 30 MG, UNK
     Route: 065
     Dates: start: 20151023, end: 20151029
  10. URANTAC [Concomitant]
     Dosage: 100 MG, UNK
     Route: 065
     Dates: start: 20151118, end: 20151118
  11. ALIMTA [Concomitant]
     Active Substance: PEMETREXED DISODIUM
     Dosage: 825 MG, UNK
     Route: 065
     Dates: start: 20151208, end: 20151208
  12. AROBEST [Concomitant]
     Dosage: 60 MG, UNK
     Route: 065
     Dates: start: 20151114, end: 20151127
  13. BUSCOPAN [Concomitant]
     Active Substance: BUTYLSCOPOLAMINE BROMIDE
     Indication: CHOLELITHIASIS
     Dosage: 20 MG, UNK
     Route: 065
     Dates: start: 20151110, end: 20151110
  14. URSA [Concomitant]
     Indication: CHOLELITHIASIS
     Dosage: 200 MG, UNK
     Route: 065
     Dates: start: 20151113, end: 20151113
  15. URSA [Concomitant]
     Dosage: 600 MG, UNK
     Route: 065
     Dates: start: 20151114, end: 20151210
  16. BANAN [Concomitant]
     Active Substance: CEFPODOXIME PROXETIL
     Indication: PROPHYLAXIS
     Dosage: 200 MG, UNK
     Route: 065
     Dates: start: 20151114, end: 20151119
  17. DEXAMETHASONE. [Concomitant]
     Active Substance: DEXAMETHASONE
     Dosage: TABLET
     Route: 065
     Dates: start: 20151208, end: 20151208
  18. LANOBIN [Concomitant]
     Dosage: 5 MG, UNK
     Route: 065
     Dates: start: 20151229, end: 20151229
  19. MACPERAN [Concomitant]
     Active Substance: METOCLOPRAMIDE HYDROCHLORIDE
     Dosage: 10 MG, UNK
     Route: 065
     Dates: start: 20151028, end: 20151028
  20. TACOPEN [Concomitant]
     Indication: LUNG NEOPLASM MALIGNANT
     Dosage: 4 DF, UNK
     Route: 065
     Dates: start: 20151010, end: 20151127
  21. TRIDOL [Concomitant]
     Active Substance: TRAMADOL HYDROCHLORIDE
     Dosage: 150 MG, UNK
     Route: 065
     Dates: start: 20151117, end: 20151117
  22. URANTAC [Concomitant]
     Dosage: 50 MG, UNK
     Route: 065
     Dates: start: 20151112, end: 20151112
  23. AROBEST [Concomitant]
     Indication: NEUROPATHY PERIPHERAL
     Dosage: 40 MG, UNK
     Route: 065
     Dates: start: 20151113, end: 20151113
  24. BUSCOPAN [Concomitant]
     Active Substance: BUTYLSCOPOLAMINE BROMIDE
     Dosage: 20 MG, UNK
     Route: 065
     Dates: start: 20151117, end: 20151117
  25. DEXAMETHASONE. [Concomitant]
     Active Substance: DEXAMETHASONE
     Dosage: 5 MG, (INJECTION)
     Route: 065
     Dates: start: 20151208, end: 20151208
  26. FOLIC ACID. [Concomitant]
     Active Substance: FOLIC ACID
     Indication: VITAMIN SUPPLEMENTATION
     Dosage: 1 MG
     Route: 065
     Dates: start: 20151005
  27. IRCODON [Concomitant]
     Indication: LUNG NEOPLASM MALIGNANT
     Dosage: 5 MG, UNK
     Route: 065
     Dates: start: 20151007, end: 20151007
  28. MACPERAN [Concomitant]
     Active Substance: METOCLOPRAMIDE HYDROCHLORIDE
     Dosage: 20 MG, UNK
     Route: 065
     Dates: start: 20151120, end: 20151120
  29. MACPERAN [Concomitant]
     Active Substance: METOCLOPRAMIDE HYDROCHLORIDE
     Dosage: 30 MG, UNK
     Route: 065
     Dates: start: 20151208, end: 20151208
  30. TRIDOL [Concomitant]
     Active Substance: TRAMADOL HYDROCHLORIDE
     Dosage: 50 MG, UNK
     Route: 065
     Dates: start: 20151116, end: 20151116
  31. URANTAC [Concomitant]
     Dosage: 100 MG, UNK
     Route: 065
     Dates: start: 20151113, end: 20151113
  32. DEXAMETHASONE. [Concomitant]
     Active Substance: DEXAMETHASONE
     Indication: CYSTITIS
     Dosage: TABLET
     Route: 065
     Dates: start: 20151014, end: 20151014
  33. FOY [Concomitant]
     Active Substance: GABEXATE MESYLATE
     Indication: CHOLELITHIASIS
     Dosage: 300 MG, UNK
     Route: 065
     Dates: start: 20151111, end: 20151111
  34. LESCOL XL [Concomitant]
     Active Substance: FLUVASTATIN SODIUM
     Indication: ANGINA PECTORIS
     Dosage: 80 MG, UNK
     Route: 065
     Dates: start: 20141103
  35. MACPERAN [Concomitant]
     Active Substance: METOCLOPRAMIDE HYDROCHLORIDE
     Dosage: 15 MG, UNK
     Route: 065
     Dates: start: 20151105, end: 20151109
  36. MACPERAN [Concomitant]
     Active Substance: METOCLOPRAMIDE HYDROCHLORIDE
     Dosage: 30 MG, UNK
     Route: 065
     Dates: start: 20151229, end: 20151229
  37. MORPHINE SULPHATE [Concomitant]
     Active Substance: MORPHINE SULFATE
     Dosage: 8 MG, UNK
     Dates: start: 20151113, end: 20151113
  38. MORPHINE SULPHATE [Concomitant]
     Active Substance: MORPHINE SULFATE
     Dosage: 2 MG, UNK
     Route: 065
     Dates: start: 20151114, end: 20151114
  39. NITROGLYCERIN. [Concomitant]
     Active Substance: NITROGLYCERIN
     Indication: ANGINA PECTORIS
     Dosage: 0.6 MG, UNK
     Route: 065
     Dates: start: 20151028, end: 20151031
  40. NITROGLYCERIN. [Concomitant]
     Active Substance: NITROGLYCERIN
     Dosage: 0.6 MG, UNK
     Route: 065
     Dates: start: 20151130, end: 20151219
  41. PANCRON//PANCREATIN [Concomitant]
     Indication: GASTRITIS PROPHYLAXIS
     Dosage: 3 DF, UNK
     Route: 065
     Dates: start: 20151114, end: 20151118
  42. PARAMACET [Concomitant]
     Active Substance: ACETAMINOPHEN\TRAMADOL
     Indication: NEUROPATHY PERIPHERAL
     Dosage: 4 DF, UNK
     Route: 065
     Dates: start: 20151005, end: 20151007
  43. TRIDOL [Concomitant]
     Active Substance: TRAMADOL HYDROCHLORIDE
     Indication: PAIN PROPHYLAXIS
     Dosage: 100 MG, UNK
     Route: 065
     Dates: start: 20151111, end: 20151111
  44. URANTAC [Concomitant]
     Dosage: 100 MG, UNK
     Route: 065
     Dates: start: 20151111, end: 20151111
  45. ALIMTA [Concomitant]
     Active Substance: PEMETREXED DISODIUM
     Indication: LUNG NEOPLASM MALIGNANT
     Dosage: 825 MG, UNK
     Route: 065
     Dates: start: 20151014, end: 20151014
  46. ANEXATE [Concomitant]
     Active Substance: FLUMAZENIL
     Indication: ENDOSCOPIC RETROGRADE CHOLANGIOPANCREATOGRAPHY
     Dosage: 0.5 MG, UNK
     Route: 065
     Dates: start: 20151117, end: 20151117
  47. BEARSE [Concomitant]
     Indication: GASTRITIS PROPHYLAXIS
     Dosage: 3 DF, UNK
     Route: 065
     Dates: start: 20151114, end: 20151127
  48. FLUMARIN [Concomitant]
     Active Substance: FLOMOXEF SODIUM
     Indication: PROPHYLAXIS
     Dosage: 2000 MG, UNK
     Route: 065
     Dates: start: 20151007, end: 20151007
  49. HERBEN [Concomitant]
     Indication: ANGINA PECTORIS
     Dosage: 180 MG, UNK
     Route: 065
     Dates: start: 20141103
  50. LANOBIN [Concomitant]
     Indication: NEUROPATHY PERIPHERAL
     Dosage: 1 MG, UNK
     Route: 065
     Dates: start: 20151014, end: 20151014
  51. MACPERAN [Concomitant]
     Active Substance: METOCLOPRAMIDE HYDROCHLORIDE
     Indication: PROPHYLAXIS OF NAUSEA AND VOMITING
     Dosage: 30 MG, UNK
     Route: 065
     Dates: start: 20151014, end: 20151014
  52. MACPERAN [Concomitant]
     Active Substance: METOCLOPRAMIDE HYDROCHLORIDE
     Dosage: 30 MG, UNK
     Route: 065
     Dates: start: 20151104, end: 20151104
  53. MACPERAN [Concomitant]
     Active Substance: METOCLOPRAMIDE HYDROCHLORIDE
     Dosage: 15 MG, UNK
     Route: 065
     Dates: start: 20151209, end: 20151213
  54. MORPHINE SULPHATE [Concomitant]
     Active Substance: MORPHINE SULFATE
     Dosage: 4 MG, UNK
     Route: 065
     Dates: start: 20151112, end: 20151112
  55. MVH [Concomitant]
     Active Substance: VITAMINS
     Indication: NUTRITIONAL SUPPLEMENTATION
     Dosage: 5 MG, UNK
     Route: 065
     Dates: start: 20151111, end: 20151111
  56. URANTAC [Concomitant]
     Dosage: 50 MG, UNK
     Route: 065
     Dates: start: 20151117, end: 20151117
  57. ALIMTA [Concomitant]
     Active Substance: PEMETREXED DISODIUM
     Dosage: 825 MG, UNK
     Route: 065
     Dates: start: 20151104, end: 20151104
  58. CURAN [Concomitant]
     Active Substance: RANITIDINE HYDROCHLORIDE
     Indication: GASTRITIS PROPHYLAXIS
     Dosage: 300 MG, UNK
     Route: 065
     Dates: start: 20151029, end: 20151102
  59. DEXAMETHASONE. [Concomitant]
     Active Substance: DEXAMETHASONE
     Dosage: 5 MG, (INJECTION)
     Route: 065
     Dates: start: 20151104, end: 20151104
  60. FUTHAN [Concomitant]
     Active Substance: NAFAMOSTAT MESYLATE
     Dosage: 30 MG, UNK
     Route: 065
     Dates: start: 20151112, end: 20151113
  61. MACPERAN [Concomitant]
     Active Substance: METOCLOPRAMIDE HYDROCHLORIDE
     Dosage: 20 MG, UNK
     Route: 065
     Dates: start: 20151118, end: 20151118
  62. MORPHINE SULPHATE [Concomitant]
     Active Substance: MORPHINE SULFATE
     Indication: LUNG NEOPLASM MALIGNANT
     Dosage: 2 MG, UNK
     Route: 065
     Dates: start: 20151111, end: 20151111
  63. SOLONDO [Concomitant]
     Active Substance: PREDNISOLONE
     Indication: LUNG NEOPLASM MALIGNANT
     Dosage: 20 MG, UNK
     Route: 065
     Dates: start: 20151229, end: 20151229
  64. URANTAC [Concomitant]
     Dosage: 50 MG, UNK
     Route: 065
     Dates: start: 20151110, end: 20151110
  65. ONBREZ BREEZHALER [Suspect]
     Active Substance: INDACATEROL
     Indication: CHRONIC OBSTRUCTIVE PULMONARY DISEASE
     Dosage: 150 UG, UNK
     Route: 055
     Dates: start: 20151007, end: 201512
  66. DEXAMETHASONE. [Concomitant]
     Active Substance: DEXAMETHASONE
     Indication: NEUROPATHY PERIPHERAL
     Dosage: 5 MG, (INJECTION)
     Route: 065
     Dates: start: 20151014, end: 20151014
  67. DEXAMETHASONE. [Concomitant]
     Active Substance: DEXAMETHASONE
     Dosage: TABLET
     Route: 065
     Dates: start: 20151104, end: 20151104
  68. DEXAMETHASONE. [Concomitant]
     Active Substance: DEXAMETHASONE
     Dosage: 5 MG, (INJECTION)
     Route: 065
     Dates: start: 20151229, end: 20151229
  69. DIPAM//DIAZEPAM [Concomitant]
     Indication: NEUROPATHY PERIPHERAL
     Dosage: 20 MG, UNK
     Route: 065
     Dates: start: 20151113, end: 20151113
  70. FOIPAN [Concomitant]
     Active Substance: CAMOSTAT MESYLATE
     Indication: GASTROOESOPHAGEAL REFLUX DISEASE
     Dosage: 300 MG, UNK
     Route: 065
     Dates: start: 20151114, end: 20151127
  71. FOY [Concomitant]
     Active Substance: GABEXATE MESYLATE
     Dosage: 300 MG, UNK
     Route: 065
     Dates: start: 20151119, end: 20151119
  72. MACPERAN [Concomitant]
     Active Substance: METOCLOPRAMIDE HYDROCHLORIDE
     Dosage: 15 MG, UNK
     Route: 065
     Dates: start: 20151029, end: 20151103
  73. MOSAONE [Concomitant]
     Indication: GASTRITIS PROPHYLAXIS
     Dosage: 10 MG, UNK
     Route: 065
     Dates: start: 20141201
  74. PARAMACET [Concomitant]
     Active Substance: ACETAMINOPHEN\TRAMADOL
     Dosage: 3 DF, UNK
     Route: 065
     Dates: start: 20151104, end: 20151126

REACTIONS (1)
  - Cholangitis [Recovering/Resolving]

NARRATIVE: CASE EVENT DATE: 20151110
